FAERS Safety Report 18980289 (Version 1)
Quarter: 2021Q1

REPORT INFORMATION
  Report Type: Spontaneous
  Country: BE (occurrence: BE)
  Receive Date: 20210308
  Receipt Date: 20210308
  Transmission Date: 20210420
  Serious: Yes (Hospitalization)
  Sender: FDA-Public Use
  Company Number: BE-BAYER-2021-085706

PATIENT
  Age: 43 Year
  Sex: Male
  Weight: 85 kg

DRUGS (4)
  1. DICLOFENAC [Suspect]
     Active Substance: DICLOFENAC
  2. BRUFEN [IBUPROFEN] [Suspect]
     Active Substance: IBUPROFEN
  3. ALEVE [Suspect]
     Active Substance: NAPROXEN SODIUM
     Dosage: UNK
  4. ASPIRINE [Suspect]
     Active Substance: ASPIRIN

REACTIONS (2)
  - Asphyxia [Not Recovered/Not Resolved]
  - Respiratory disorder [Not Recovered/Not Resolved]

NARRATIVE: CASE EVENT DATE: 20151225
